FAERS Safety Report 4989118-2 (Version None)
Quarter: 2006Q1

REPORT INFORMATION
  Report Type: 
  Country: None (occurrence: None)
  Receive Date: 20060314
  Receipt Date: 20051216
  Transmission Date: 20060701
  Serious: Yes (Life-Threatening, Other)
  Sender: FDA-Public Use
  Company Number: 200515126BCC

PATIENT
  Age: 52 Year
  Sex: Female
  Weight: 83.9154 kg

DRUGS (1)
  1. ALEVE (CAPLET) [Suspect]
     Dosage: 440 MG, ONCE, ORAL
     Route: 048
     Dates: start: 19990222

REACTIONS (8)
  - ANAPHYLACTIC REACTION [None]
  - CARDIAC ARREST [None]
  - DYSPNOEA [None]
  - EYE SWELLING [None]
  - PRURITUS [None]
  - SWELLING [None]
  - THROAT TIGHTNESS [None]
  - URTICARIA [None]
